FAERS Safety Report 26043767 (Version 1)
Quarter: 2025Q4

REPORT INFORMATION
  Report Type: Spontaneous
  Country: CN (occurrence: CN)
  Receive Date: 20251114
  Receipt Date: 20251114
  Transmission Date: 20260117
  Serious: Yes (Other)
  Sender: PHARMOBEDIENT CONSULTING, LLC
  Company Number: CN-Pharmobedient-000469

PATIENT
  Age: 36 Year
  Sex: Male

DRUGS (3)
  1. CISPLATIN [Suspect]
     Active Substance: CISPLATIN
     Indication: Nasopharyngeal cancer
     Dosage: DAYS 1-2
     Dates: start: 202403
  2. GEMCITABINE [Suspect]
     Active Substance: GEMCITABINE
     Indication: Nasopharyngeal cancer
     Dosage: AT A DOSE OF 1 G/M2 ON DAYS 1 AND 8
     Dates: start: 202403
  3. TISLELIZUMAB [Suspect]
     Active Substance: TISLELIZUMAB
     Indication: Nasopharyngeal cancer
     Dosage: ON DAY 1
     Dates: start: 202403

REACTIONS (3)
  - Trigeminal neuralgia [Recovering/Resolving]
  - Immunosuppression [Recovering/Resolving]
  - Intracranial infection [Recovering/Resolving]

NARRATIVE: CASE EVENT DATE: 20240301
